FAERS Safety Report 7603492-X (Version None)
Quarter: 2011Q3

REPORT INFORMATION
  Report Type: 
  Country: None (occurrence: None)
  Receive Date: 20110712
  Receipt Date: 20100414
  Transmission Date: 20111222
  Serious: Yes (Death, Other)
  Sender: FDA-Public Use
  Company Number: US-AMGEN-QUU405807

PATIENT
  Age: 68 Year
  Sex: Female

DRUGS (5)
  1. AZATHIOPRINE [Concomitant]
  2. DANAZOL [Concomitant]
  3. NPLATE [Suspect]
     Indication: IDIOPATHIC THROMBOCYTOPENIC PURPURA
     Dosage: 10 A?G/KG, UNK
     Dates: start: 20080905, end: 20081114
  4. RITUXIMAB [Concomitant]
     Dosage: UNK UNK, UNK
     Dates: start: 20070726
  5. VINCRISTINE SULFATE [Concomitant]

REACTIONS (2)
  - SEPSIS [None]
  - DRUG INEFFECTIVE [None]
